FAERS Safety Report 8300154-0 (Version None)
Quarter: 2012Q2

REPORT INFORMATION
  Report Type: 
  Country: None (occurrence: None)
  Receive Date: 20120417
  Receipt Date: 20120404
  Transmission Date: 20120825
  Serious: Yes (Disabling)
  Sender: FDA-Public Use
  Company Number: 2012AP000946

PATIENT
  Age: 89 Year
  Sex: Male

DRUGS (8)
  1. CITALOPRAM HYDROBROMIDE [Concomitant]
  2. PARACETAMOL [Concomitant]
  3. ALENDRONATE SODIUM [Suspect]
     Indication: OSTEOPOROSIS
     Dosage: 70 MG;QW;PO
     Route: 048
     Dates: end: 20120112
  4. ADCAL [Concomitant]
  5. OMEPRAZOLE [Concomitant]
  6. SYMBICORT [Concomitant]
  7. CYANOCOBALAMIN [Concomitant]
  8. HYDROXYUREA [Concomitant]

REACTIONS (4)
  - LIP EXFOLIATION [None]
  - MOUTH ULCERATION [None]
  - LIP ULCERATION [None]
  - ORAL MUCOSAL ERYTHEMA [None]
